FAERS Safety Report 21407365 (Version 1)
Quarter: 2022Q4

REPORT INFORMATION
  Report Type: Spontaneous
  Country: US (occurrence: None)
  Receive Date: 20221003
  Receipt Date: 20221003
  Transmission Date: 20230113
  Serious: Yes (Life-Threatening, Other)
  Sender: FDA-Public Use
  Company Number: None

PATIENT
  Age: 34 Year
  Sex: Female
  Weight: 90 kg

DRUGS (5)
  1. ALPRAZOLAM [Suspect]
     Active Substance: ALPRAZOLAM
     Dosage: FREQUENCY : 3 TIMES A DAY;?
     Route: 048
     Dates: start: 20220912
  2. ALPRAZOLAM [Concomitant]
     Active Substance: ALPRAZOLAM
  3. ADDERALL [Concomitant]
     Active Substance: AMPHETAMINE ASPARTATE\AMPHETAMINE SULFATE\DEXTROAMPHETAMINE SACCHARATE\DEXTROAMPHETAMINE SULFATE
  4. FAMOTIDINE [Concomitant]
     Active Substance: FAMOTIDINE
  5. ZYRTEC [Concomitant]
     Active Substance: CETIRIZINE HYDROCHLORIDE

REACTIONS (3)
  - Drug ineffective [None]
  - Panic attack [None]
  - Anxiety [None]

NARRATIVE: CASE EVENT DATE: 20221003
